FAERS Safety Report 5605671-X (Version None)
Quarter: 2008Q1

REPORT INFORMATION
  Report Type: 
  Country: None (occurrence: None)
  Receive Date: 20080125
  Receipt Date: 20080117
  Transmission Date: 20080703
  Serious: Yes (Other)
  Sender: FDA-Public Use
  Company Number: 2008S1000518

PATIENT
  Age: 57 Year
  Sex: Male

DRUGS (3)
  1. PHOSPHOSODA FLAVOR NOT SPECIFIED [Suspect]
     Indication: COLONOSCOPY
     Dosage: PO
     Route: 048
     Dates: start: 20061115, end: 20061115
  2. LIPITOR [Concomitant]
  3. BENICAR [Concomitant]

REACTIONS (3)
  - NEPHROPATHY [None]
  - RENAL FAILURE ACUTE [None]
  - RENAL IMPAIRMENT [None]
